FAERS Safety Report 25774440 (Version 1)
Quarter: 2025Q3

REPORT INFORMATION
  Report Type: Spontaneous
  Country: EU (occurrence: EU)
  Receive Date: 20250908
  Receipt Date: 20250908
  Transmission Date: 20251021
  Serious: Yes (Death, Hospitalization)
  Sender: ALEXION PHARMACEUTICALS
  Company Number: EU-AstraZeneca-CH-00913703A

PATIENT
  Age: 59 Year
  Sex: Male
  Weight: 125 kg

DRUGS (11)
  1. IMFINZI [Suspect]
     Active Substance: DURVALUMAB
     Dosage: UNK UNK, Q4W
     Dates: start: 20250406, end: 20250406
  2. IMJUDO [Suspect]
     Active Substance: TREMELIMUMAB\TREMELIMUMAB-ACTL
  3. Furosemide an [Concomitant]
     Route: 065
  4. Pantoprazole an [Concomitant]
  5. Alfa normix forte [Concomitant]
  6. Lercanidipine accord [Concomitant]
     Route: 065
  7. Flecainide acetate pfizer [Concomitant]
  8. Bisoprolol abacus medicine [Concomitant]
  9. APIXABAN [Concomitant]
     Active Substance: APIXABAN
  10. CARDURA XL [Concomitant]
     Active Substance: DOXAZOSIN MESYLATE
  11. Potassium chloride 0.15% + glucose 5% [Concomitant]

REACTIONS (3)
  - Pneumonia [Fatal]
  - Cough [Fatal]
  - Dyspnoea [Fatal]
